FAERS Safety Report 5877090-2 (Version None)
Quarter: 2008Q3

REPORT INFORMATION
  Report Type: 
  Country: None (occurrence: None)
  Receive Date: 20080910
  Receipt Date: 20080903
  Transmission Date: 20090109
  Serious: Yes (Other)
  Sender: FDA-Public Use
  Company Number: PHHY2008BR20323

PATIENT
  Age: 48 Year
  Sex: Female
  Weight: 66 kg

DRUGS (2)
  1. COMBIPATCH [Suspect]
     Indication: HORMONE THERAPY
     Dosage: 50/140 MCG, 1 ADHESIVE EVERY 3-4 DAYS
     Route: 062
     Dates: start: 20020101
  2. OMEPRAZOLE [Concomitant]
     Dosage: 20 MG, QD

REACTIONS (4)
  - APPLICATION SITE PRURITUS [None]
  - DIABETES MELLITUS [None]
  - HYPERTENSION [None]
  - WOUND [None]
